FAERS Safety Report 18740672 (Version 1)
Quarter: 2021Q1

REPORT INFORMATION
  Report Type: Spontaneous
  Country: US (occurrence: US)
  Receive Date: 20210114
  Receipt Date: 20210114
  Transmission Date: 20210419
  Serious: Yes (Hospitalization)
  Sender: FDA-Public Use
  Company Number: None

PATIENT
  Age: 85 Year
  Sex: Female
  Weight: 78.3 kg

DRUGS (20)
  1. METOPROLOL. [Concomitant]
     Active Substance: METOPROLOL
     Dates: start: 20100101
  2. LASIX [Concomitant]
     Active Substance: FUROSEMIDE
     Dates: start: 20200916
  3. IRON [Concomitant]
     Active Substance: IRON
     Dates: start: 20190101
  4. VITAMIN D [Concomitant]
     Active Substance: VITAMIN D NOS
     Dates: start: 20100101
  5. CALCIUM?D3 [Concomitant]
     Dates: start: 20100101
  6. FULVESTRANT. [Suspect]
     Active Substance: FULVESTRANT
     Indication: BREAST CANCER
     Dosage: ?          OTHER FREQUENCY:EVERY 28 DAYS;?
     Route: 030
     Dates: start: 20200609, end: 20201214
  7. PRAMIPEXOI [Concomitant]
     Dates: start: 20200915
  8. GLIPIZIDE ER [Concomitant]
     Active Substance: GLIPIZIDE
     Dates: start: 20150101
  9. ASPIRIN. [Concomitant]
     Active Substance: ASPIRIN
     Dates: start: 20190101
  10. METFORMIN [Concomitant]
     Active Substance: METFORMIN HYDROCHLORIDE
     Dates: start: 20100101
  11. ELIQUIS [Concomitant]
     Active Substance: APIXABAN
     Dates: start: 20190101
  12. VICODIN [Concomitant]
     Active Substance: ACETAMINOPHEN\HYDROCODONE BITARTRATE
     Dates: start: 20200623
  13. TYLENOL [Concomitant]
     Active Substance: ACETAMINOPHEN
     Dates: start: 20160101
  14. SERTRALINE [Concomitant]
     Active Substance: SERTRALINE HYDROCHLORIDE
     Dates: start: 20130101
  15. XANAX [Concomitant]
     Active Substance: ALPRAZOLAM
     Dates: start: 20200915
  16. POTASSIUM EXTENDED RELEASE [Concomitant]
     Dates: start: 20190101
  17. PALBOCICLIB [Suspect]
     Active Substance: PALBOCICLIB
     Indication: BREAST CANCER
     Route: 048
     Dates: start: 20200609, end: 20210103
  18. DETROL [Concomitant]
     Active Substance: TOLTERODINE TARTRATE
     Dates: start: 20201026
  19. MAGNESIUM [Concomitant]
     Active Substance: MAGNESIUM
     Dates: start: 20201026
  20. VITAMIN B12 [Concomitant]
     Active Substance: CYANOCOBALAMIN
     Dates: start: 20160101

REACTIONS (3)
  - Cardiac failure [None]
  - Polyuria [None]
  - Hyponatraemia [None]

NARRATIVE: CASE EVENT DATE: 20210112
